FAERS Safety Report 19467369 (Version 1)
Quarter: 2021Q2

REPORT INFORMATION
  Report Type: Spontaneous
  Country: US (occurrence: US)
  Receive Date: 20210628
  Receipt Date: 20210628
  Transmission Date: 20210717
  Serious: Yes (Other)
  Sender: FDA-Public Use
  Company Number: US-ROCHE-2824882

PATIENT
  Age: 44 Year
  Sex: Female

DRUGS (2)
  1. TUKYSA [Suspect]
     Active Substance: TUCATINIB
     Indication: BREAST CANCER FEMALE
     Route: 065
  2. XELODA [Suspect]
     Active Substance: CAPECITABINE
     Indication: PRODUCT USED FOR UNKNOWN INDICATION
     Route: 048

REACTIONS (19)
  - Neuropathy peripheral [Unknown]
  - Laryngitis [Unknown]
  - Creatinine renal clearance increased [Unknown]
  - Back pain [Unknown]
  - Liver function test increased [Unknown]
  - Abdominal pain [Unknown]
  - Weight increased [Unknown]
  - Dysphonia [Unknown]
  - Feeling abnormal [Unknown]
  - Lung neoplasm [Unknown]
  - Palmar-plantar erythrodysaesthesia syndrome [Unknown]
  - Ventricular failure [Unknown]
  - Joint swelling [Unknown]
  - Balance disorder [Unknown]
  - Platelet count decreased [Unknown]
  - Red blood cell count decreased [Unknown]
  - Blood bilirubin increased [Unknown]
  - Pleural disorder [Unknown]
  - Aspartate aminotransferase increased [Unknown]

NARRATIVE: CASE EVENT DATE: 20210511
